FAERS Safety Report 9935843 (Version 1)
Quarter: 2014Q1

REPORT INFORMATION
  Report Type: Spontaneous
  Country: US (occurrence: US)
  Receive Date: 20140228
  Receipt Date: 20140228
  Transmission Date: 20141002
  Serious: No
  Sender: FDA-Public Use
  Company Number: US-AMGEN-USASP2013071881

PATIENT
  Age: 76 Year
  Sex: Female
  Weight: 69.84 kg

DRUGS (1)
  1. ENBREL [Suspect]
     Indication: RHEUMATOID ARTHRITIS
     Dosage: 25 MG, 2 TIMES/WK
     Route: 058
     Dates: start: 2012

REACTIONS (4)
  - Dry mouth [Unknown]
  - Injection site bruising [Unknown]
  - Tooth loss [Unknown]
  - Injection site pain [Unknown]
